FAERS Safety Report 19181921 (Version 1)
Quarter: 2021Q2

REPORT INFORMATION
  Report Type: Spontaneous
  Country: US (occurrence: US)
  Receive Date: 20210427
  Receipt Date: 20210427
  Transmission Date: 20210717
  Serious: Yes (Other)
  Sender: FDA-Public Use
  Company Number: US-SUN PHARMACEUTICAL INDUSTRIES LTD-2021R1-290207

PATIENT
  Age: 11 Year
  Sex: Male
  Weight: 28.9 kg

DRUGS (2)
  1. VALPROIC ACID. [Suspect]
     Active Substance: VALPROIC ACID
     Indication: SEIZURE
     Dosage: 31 MILLIGRAM/KILOGRAM, DAILY
     Route: 065
  2. LACOSAMIDE. [Concomitant]
     Active Substance: LACOSAMIDE
     Indication: SEIZURE
     Dosage: 7 MILLIGRAM/KILOGRAM, DAILY
     Route: 065

REACTIONS (1)
  - Pancytopenia [Recovered/Resolved]
